FAERS Safety Report 7539923-3 (Version None)
Quarter: 2011Q2

REPORT INFORMATION
  Report Type: 
  Country: None (occurrence: None)
  Receive Date: 20110602
  Receipt Date: 20110518
  Transmission Date: 20111010
  Serious: Yes (Hospitalization, Other)
  Sender: FDA-Public Use
  Company Number: 2011MA006150

PATIENT
  Age: 50 Year
  Sex: Male

DRUGS (10)
  1. ASPIRIN [Concomitant]
  2. SIMVASTATIN [Concomitant]
  3. FENOFIBRATE [Concomitant]
  4. RISPERIDONE [Concomitant]
  5. ATENOLOL [Concomitant]
  6. LISINOPRIL [Concomitant]
  7. FERROUS SULFATE TAB [Concomitant]
  8. CLONAZEPAM [Suspect]
  9. BENZTROPINE MESYLATE [Concomitant]
  10. JANUMET [Concomitant]

REACTIONS (17)
  - DIALYSIS [None]
  - ATRIOVENTRICULAR BLOCK FIRST DEGREE [None]
  - HAEMOGLOBIN DECREASED [None]
  - ASTHENIA [None]
  - BLOOD GLUCOSE INCREASED [None]
  - BLOOD CALCIUM DECREASED [None]
  - HYPOTENSION [None]
  - PALLOR [None]
  - RESPIRATORY RATE INCREASED [None]
  - RENAL FAILURE ACUTE [None]
  - HYPERKALAEMIA [None]
  - SPEECH DISORDER [None]
  - BLOOD BICARBONATE DECREASED [None]
  - BRADYCARDIA [None]
  - LOSS OF CONSCIOUSNESS [None]
  - PAIN [None]
  - BLOOD CHLORIDE INCREASED [None]
